FAERS Safety Report 6568211-7 (Version None)
Quarter: 2010Q1

REPORT INFORMATION
  Report Type: 
  Country: None (occurrence: None)
  Receive Date: 20100203
  Receipt Date: 20100129
  Transmission Date: 20100710
  Serious: Yes (Hospitalization)
  Sender: FDA-Public Use
  Company Number: US-ROCHE-682750

PATIENT
  Sex: Female

DRUGS (1)
  1. CAPECITABINE [Suspect]
     Route: 048
     Dates: start: 20091217

REACTIONS (3)
  - FULL BLOOD COUNT DECREASED [None]
  - GALLBLADDER DISORDER [None]
  - HYPOTHALAMO-PITUITARY DISORDER [None]
